FAERS Safety Report 23815689 (Version 1)
Quarter: 2024Q2

REPORT INFORMATION
  Report Type: Spontaneous
  Country: US (occurrence: None)
  Receive Date: 20240502
  Receipt Date: 20240502
  Transmission Date: 20240716
  Serious: No
  Sender: FDA-Public Use
  Company Number: None

PATIENT
  Age: 75 Year
  Sex: Male
  Weight: 75.6 kg

DRUGS (1)
  1. LISINOPRIL [Suspect]
     Active Substance: LISINOPRIL
     Indication: Hypertension
     Dosage: OTHER QUANTITY : 1 TABLET(S);?
     Route: 048

REACTIONS (17)
  - Dizziness [None]
  - Tachycardia [None]
  - Syncope [None]
  - Tinnitus [None]
  - Deafness [None]
  - Dysphonia [None]
  - Ophthalmic migraine [None]
  - Vascular insufficiency [None]
  - Sleep disorder [None]
  - Muscle twitching [None]
  - Aggression [None]
  - Erectile dysfunction [None]
  - Libido decreased [None]
  - Erectile dysfunction [None]
  - Peripheral swelling [None]
  - Cyanosis [None]
  - Hyperacusis [None]

NARRATIVE: CASE EVENT DATE: 20240410
